FAERS Safety Report 4284343-0 (Version None)
Quarter: 2004Q1

REPORT INFORMATION
  Report Type: 
  Country: None (occurrence: None)
  Receive Date: 20040130
  Receipt Date: 20040108
  Transmission Date: 20041129
  Serious: Yes (Other)
  Sender: FDA-Public Use
  Company Number: USA040156190

PATIENT
  Age: 36 Year
  Sex: Male

DRUGS (1)
  1. HUMULIN-HUMAN INSULIN (RDNA) UNKNOWN FORMULATION (HU [Suspect]
     Indication: DIABETES MELLITUS

REACTIONS (2)
  - MOVEMENT DISORDER [None]
  - MUSCLE DISORDER [None]
